FAERS Safety Report 12320782 (Version 1)
Quarter: 2016Q2

REPORT INFORMATION
  Report Type: Spontaneous
  Country: US (occurrence: US)
  Receive Date: 20160429
  Receipt Date: 20160429
  Transmission Date: 20160815
  Serious: No
  Sender: FDA-Public Use
  Company Number: US-ROCHE-1560120

PATIENT
  Sex: Male
  Weight: 68.1 kg

DRUGS (1)
  1. AVASTIN [Suspect]
     Active Substance: BEVACIZUMAB
     Indication: RETINAL VEIN OCCLUSION
     Dosage: ONCE EVERY 4-6 WEEKS
     Route: 050

REACTIONS (1)
  - Drug ineffective [Unknown]
